FAERS Safety Report 5388418-4 (Version None)
Quarter: 2007Q3

REPORT INFORMATION
  Report Type: 
  Country: None (occurrence: None)
  Receive Date: 20070716
  Receipt Date: 20070704
  Transmission Date: 20080115
  Serious: Yes (Other)
  Sender: FDA-Public Use
  Company Number: GB-ELI_LILLY_AND_COMPANY-GB200705007291

PATIENT
  Age: 9 Year
  Sex: Male
  Weight: 30 kg

DRUGS (3)
  1. ATOMOXETINE HYDROCHLORIDE [Suspect]
     Dosage: 25 UNK, UNK
     Route: 048
     Dates: start: 20060907, end: 20060930
  2. ATOMOXETINE HYDROCHLORIDE [Suspect]
     Dosage: 25 MG, UNK
     Route: 048
     Dates: start: 20060930, end: 20070401
  3. ATOMOXETINE HYDROCHLORIDE [Suspect]
     Dosage: 10 MG, UNK
     Route: 048
     Dates: start: 20070401, end: 20070530

REACTIONS (3)
  - ABDOMINAL PAIN [None]
  - DYSPNOEA [None]
  - PALPITATIONS [None]
